FAERS Safety Report 9435879 (Version 1)
Quarter: 2013Q3

REPORT INFORMATION
  Report Type: Spontaneous
  Country: US (occurrence: None)
  Receive Date: 20130801
  Receipt Date: 20130801
  Transmission Date: 20140515
  Serious: Yes (Death, Disabling)
  Sender: FDA-Public Use
  Company Number: None

PATIENT
  Age: 65 Year
  Sex: Female
  Weight: 44.45 kg

DRUGS (1)
  1. HUMIRA [Suspect]
     Indication: RHEUMATOID ARTHRITIS
     Dosage: 0.8 ML EVERY TWO WEEKS SUBCUTANEOUS INJECTION
     Route: 058
     Dates: start: 20070101, end: 20130627

REACTIONS (3)
  - Amyotrophic lateral sclerosis [None]
  - Respiratory failure [None]
  - Abasia [None]
